FAERS Safety Report 25189747 (Version 1)
Quarter: 2025Q2

REPORT INFORMATION
  Report Type: Spontaneous
  Country: US (occurrence: US)
  Receive Date: 20250411
  Receipt Date: 20250411
  Transmission Date: 20250716
  Serious: Yes (Life-Threatening, Hospitalization)
  Sender: MYLAN
  Company Number: US-MYLANLABS-2025M1031085

PATIENT
  Age: 58 Year
  Sex: Male

DRUGS (8)
  1. EPOPROSTENOL [Suspect]
     Active Substance: EPOPROSTENOL
     Indication: Respiratory failure
  2. EPOPROSTENOL [Suspect]
     Active Substance: EPOPROSTENOL
     Route: 055
  3. EPOPROSTENOL [Suspect]
     Active Substance: EPOPROSTENOL
     Route: 055
  4. EPOPROSTENOL [Suspect]
     Active Substance: EPOPROSTENOL
  5. FUROSEMIDE [Suspect]
     Active Substance: FUROSEMIDE
     Indication: Diuretic therapy
  6. FUROSEMIDE [Suspect]
     Active Substance: FUROSEMIDE
     Indication: Kidney congestion
     Route: 065
  7. FUROSEMIDE [Suspect]
     Active Substance: FUROSEMIDE
     Route: 065
  8. FUROSEMIDE [Suspect]
     Active Substance: FUROSEMIDE

REACTIONS (2)
  - Drug ineffective for unapproved indication [Unknown]
  - Off label use [Unknown]
